FAERS Safety Report 14114601 (Version 1)
Quarter: 2017Q4

REPORT INFORMATION
  Report Type: Spontaneous
  Country: US (occurrence: US)
  Receive Date: 20171023
  Receipt Date: 20171023
  Transmission Date: 20180321
  Serious: Yes (Hospitalization)
  Sender: FDA-Public Use
  Company Number: US-BAUSCH-BL-2017-029565

PATIENT
  Sex: Male

DRUGS (1)
  1. XIFAXAN [Suspect]
     Active Substance: RIFAXIMIN
     Indication: HEPATIC ENCEPHALOPATHY
     Route: 048

REACTIONS (4)
  - Swelling [Unknown]
  - Hospitalisation [Unknown]
  - Fluid retention [Unknown]
  - Weight increased [Unknown]

NARRATIVE: CASE EVENT DATE: 201705
